FAERS Safety Report 5861108-7 (Version None)
Quarter: 2008Q3

REPORT INFORMATION
  Report Type: 
  Country: None (occurrence: None)
  Receive Date: 20080827
  Receipt Date: 20080215
  Transmission Date: 20090109
  Serious: No
  Sender: FDA-Public Use
  Company Number: US-ABBOTT-08P-163-0438376-00

PATIENT
  Sex: Female

DRUGS (8)
  1. NIASPAN [Suspect]
     Indication: BLOOD CHOLESTEROL INCREASED
     Route: 048
     Dates: start: 20070214, end: 20080215
  2. BECLOMETHASONE DIPROPIONATE [Concomitant]
     Indication: ASTHMA
     Route: 055
  3. ALBUTEROL [Concomitant]
     Indication: ASTHMA
     Route: 055
  4. EZETIMIBE [Concomitant]
     Indication: BLOOD CHOLESTEROL INCREASED
     Route: 048
  5. LANSOPRAZOLE [Concomitant]
     Indication: GASTROOESOPHAGEAL REFLUX DISEASE
     Route: 048
  6. NARINE [Concomitant]
     Indication: SEASONAL ALLERGY
     Route: 048
  7. FLUTICASONE PROPIONATE [Concomitant]
     Indication: SEASONAL ALLERGY
  8. IBUPROFEN [Concomitant]
     Indication: BACK PAIN
     Route: 048

REACTIONS (6)
  - DYSPNOEA [None]
  - FLUSHING [None]
  - HEADACHE [None]
  - PRURITUS [None]
  - RASH [None]
  - TREMOR [None]
